FAERS Safety Report 8561638-3 (Version None)
Quarter: 2012Q3

REPORT INFORMATION
  Report Type: 
  Country: None (occurrence: None)
  Receive Date: 20120802
  Receipt Date: 20120706
  Transmission Date: 20120928
  Serious: No
  Sender: FDA-Public Use
  Company Number: US-ASTRAZENECA-2012SE46576

PATIENT
  Age: 81 Year
  Sex: Female
  Weight: 58.1 kg

DRUGS (3)
  1. PULMICORT [Suspect]
     Indication: CHRONIC OBSTRUCTIVE PULMONARY DISEASE
     Dosage: 0.25 MG IN 2 ML, DAILY
     Route: 055
  2. DITRIDAMOLE [Concomitant]
  3. NEXIUM [Suspect]
     Route: 048

REACTIONS (4)
  - GLAUCOMA [None]
  - EYE DISORDER [None]
  - OFF LABEL USE [None]
  - HEADACHE [None]
